FAERS Safety Report 10716074 (Version 1)
Quarter: 2015Q1

REPORT INFORMATION
  Report Type: Spontaneous
  Country: US (occurrence: None)
  Receive Date: 20150109
  Receipt Date: 20150109
  Transmission Date: 20150721
  Serious: Yes (Death)
  Sender: FDA-Public Use
  Company Number: 2013PROUSA03406

PATIENT
  Age: 68 Year
  Sex: Male
  Weight: 72.3 kg

DRUGS (12)
  1. DURAGESIC(FENTANYL) PATCH [Concomitant]
  2. ANTIVERT(MECLOZINE HYDROCHLORIDE) [Concomitant]
  3. NORVASC(AMLODIPINE BESILATE) [Concomitant]
  4. DOCUSATE SODIUM (DOCUSATE SODIUM) [Concomitant]
     Active Substance: DOCUSATE SODIUM
  5. PROVENGE [Suspect]
     Active Substance: SIPULEUCEL-T
     Indication: PROSTATE CANCER METASTATIC
     Dosage: SINGLE
     Route: 042
     Dates: start: 20110922, end: 20110922
  6. AVODART(DUTASTERIDE) [Concomitant]
  7. RESTORIL(TEMAZEPAM) [Concomitant]
  8. MILK OF MAGNESIA (MILK OF MAGNESIA) [Concomitant]
  9. DRISDOL (ERGOCALCIFEROL) [Concomitant]
  10. PROCHLORPERAZINE(PROCHLORPERAZINE MALEATE) [Concomitant]
  11. CULTURELLE(LACTOBACILLUS NOSE) [Concomitant]
  12. CALTRATE(CALCIJM CARBONATE) [Concomitant]

REACTIONS (1)
  - Disease progression [None]

NARRATIVE: CASE EVENT DATE: 20131027
